FAERS Safety Report 9393084 (Version 1)
Quarter: 2013Q3

REPORT INFORMATION
  Report Type: Report from Study
  Country: US (occurrence: US)
  Receive Date: 20130710
  Receipt Date: 20130710
  Transmission Date: 20140515
  Serious: Yes (Death)
  Sender: FDA-Public Use
  Company Number: US-UCBSA-091314

PATIENT
  Sex: 0

DRUGS (1)
  1. LACOSAMIDE [Suspect]
     Indication: STATUS EPILEPTICUS
     Route: 042

REACTIONS (6)
  - Death [Fatal]
  - Electrocardiogram PR prolongation [Unknown]
  - Blood pressure decreased [Unknown]
  - Aspartate aminotransferase increased [Unknown]
  - Alanine aminotransferase increased [Unknown]
  - Blood creatinine increased [Unknown]
